FAERS Safety Report 17486750 (Version 2)
Quarter: 2020Q1

REPORT INFORMATION
  Report Type: Spontaneous
  Country: US (occurrence: US)
  Receive Date: 20200303
  Receipt Date: 20200326
  Transmission Date: 20200409
  Serious: No
  Sender: FDA-Public Use
  Company Number: US-CELGENEUS-USA-20200209297

PATIENT
  Sex: Female

DRUGS (6)
  1. HUMIRA [Suspect]
     Active Substance: ADALIMUMAB
     Indication: PSORIASIS
     Dosage: 40MG/0.8 ML
     Route: 058
     Dates: start: 202001
  2. HUMIRA [Suspect]
     Active Substance: ADALIMUMAB
     Dosage: 40MG/0.8 ML
     Route: 058
     Dates: start: 2020, end: 20200228
  3. TRAMADOL. [Concomitant]
     Active Substance: TRAMADOL
     Indication: PRODUCT USED FOR UNKNOWN INDICATION
     Route: 065
  4. MISOPROSTOL. [Concomitant]
     Active Substance: MISOPROSTOL
     Indication: PRODUCT USED FOR UNKNOWN INDICATION
     Route: 065
  5. OTEZLA [Suspect]
     Active Substance: APREMILAST
     Indication: PRODUCT USED FOR UNKNOWN INDICATION
     Route: 048
  6. HUMIRA [Suspect]
     Active Substance: ADALIMUMAB
     Dosage: 40MG/0.8 ML
     Route: 058
     Dates: start: 2020

REACTIONS (12)
  - Drug ineffective [Unknown]
  - Eye disorder [Unknown]
  - Skin irritation [Unknown]
  - Headache [Unknown]
  - Pruritus [Unknown]
  - Self-consciousness [Unknown]
  - Muscle spasms [Unknown]
  - Hypoaesthesia [Unknown]
  - Psoriasis [Recovering/Resolving]
  - Throat irritation [Unknown]
  - General physical condition abnormal [Unknown]
  - Pain [Unknown]

NARRATIVE: CASE EVENT DATE: 2020
